FAERS Safety Report 5528632-8 (Version None)
Quarter: 2007Q4

REPORT INFORMATION
  Report Type: 
  Country: None (occurrence: None)
  Receive Date: 20071119
  Receipt Date: 20070330
  Transmission Date: 20080405
  Serious: Yes (Other)
  Sender: FDA-Public Use
  Company Number: 35640

PATIENT
  Sex: Female
  Weight: 95.2554 kg

DRUGS (8)
  1. METHOTREXATE [Suspect]
     Indication: RHEUMATOID ARTHRITIS
     Dosage: .8ML SQ
     Dates: start: 20050101
  2. DETROL LA [Concomitant]
  3. VYTORIN [Concomitant]
  4. NORVASC [Concomitant]
  5. BENICAR [Concomitant]
  6. CYMBALTA [Concomitant]
  7. WELLBUTRIN XL [Concomitant]
  8. NAPROXEN SODIUM [Concomitant]

REACTIONS (2)
  - DRUG INEFFECTIVE [None]
  - RASH [None]
